FAERS Safety Report 11175572 (Version 4)
Quarter: 2015Q3

REPORT INFORMATION
  Report Type: Spontaneous
  Country: JP (occurrence: JP)
  Receive Date: 20150609
  Receipt Date: 20150813
  Transmission Date: 20151125
  Serious: Yes (Hospitalization)
  Sender: FDA-Public Use
  Company Number: JP-B.I. PHARMACEUTICALS,INC./RIDGEFIELD-2015-BI-30045NB

PATIENT
  Age: 57 Year
  Sex: Male

DRUGS (5)
  1. BI-SIFROL [Suspect]
     Active Substance: PRAMIPEXOLE
     Dosage: 1.5 MG
     Route: 048
     Dates: start: 20141125, end: 20141207
  2. BI-SIFROL [Suspect]
     Active Substance: PRAMIPEXOLE
     Dosage: 1 MG
     Route: 048
     Dates: start: 20141110, end: 20141124
  3. BI-SIFROL [Suspect]
     Active Substance: PRAMIPEXOLE
     Indication: PARKINSON^S DISEASE
     Dosage: 0.25 MG
     Route: 048
     Dates: start: 20141020, end: 20141109
  4. BI-SIFROL [Suspect]
     Active Substance: PRAMIPEXOLE
     Dosage: 2.5 MG
     Route: 048
     Dates: start: 20141208, end: 20150105
  5. BI-SIFROL [Suspect]
     Active Substance: PRAMIPEXOLE
     Dosage: 3 MG
     Route: 048
     Dates: start: 20150106, end: 20150502

REACTIONS (5)
  - Liver disorder [Recovered/Resolved]
  - Rhabdomyolysis [Recovered/Resolved]
  - Renal disorder [Recovered/Resolved]
  - Pneumonia aspiration [Not Recovered/Not Resolved]
  - Neuroleptic malignant syndrome [Recovered/Resolved]

NARRATIVE: CASE EVENT DATE: 20150503
